FAERS Safety Report 9249694 (Version 2)
Quarter: 2013Q3

REPORT INFORMATION
  Report Type: Spontaneous
  Country: US (occurrence: US)
  Receive Date: 20130423
  Receipt Date: 20130717
  Transmission Date: 20140515
  Serious: No
  Sender: FDA-Public Use
  Company Number: US-BRISTOL-MYERS SQUIBB COMPANY-17278136

PATIENT
  Age: 86 Year
  Sex: Male
  Weight: 73.5 kg

DRUGS (5)
  1. YERVOY [Suspect]
     Indication: METASTATIC MALIGNANT MELANOMA
     Dosage: 30JUL2012,20AUG2012,10SEP2012,1OCT2012
     Route: 042
     Dates: start: 20120730, end: 20121001
  2. ASPIRIN [Concomitant]
  3. COREG [Concomitant]
  4. LISINOPRIL [Concomitant]
  5. PROVENTIL [Concomitant]

REACTIONS (1)
  - Gout [Recovered/Resolved]
